FAERS Safety Report 5139686-5 (Version None)
Quarter: 2006Q4

REPORT INFORMATION
  Report Type: 
  Country: None (occurrence: None)
  Receive Date: 20061024
  Receipt Date: 20060215
  Transmission Date: 20070319
  Serious: Yes (Hospitalization, Other)
  Sender: FDA-Public Use
  Company Number: 2006-02-0962

PATIENT
  Age: 20 Year
  Sex: Male
  Weight: 70 kg

DRUGS (2)
  1. DESLORATADINE [Suspect]
     Indication: HYPERSENSITIVITY
     Dosage: 5 MG; PO
     Route: 048
     Dates: start: 20060209, end: 20060209
  2. DESLORATADINE [Concomitant]

REACTIONS (2)
  - ANAEMIA [None]
  - HAEMOPNEUMOTHORAX [None]
